FAERS Safety Report 16068452 (Version 1)
Quarter: 2019Q1

REPORT INFORMATION
  Report Type: Report from Study
  Country: US (occurrence: US)
  Receive Date: 20190313
  Receipt Date: 20190313
  Transmission Date: 20190418
  Serious: Yes (Life-Threatening, Hospitalization, Other)
  Sender: FDA-Public Use
  Company Number: US-BAYER-2019-046756

PATIENT
  Age: 22 Year
  Sex: Female

DRUGS (2)
  1. STIVARGA [Suspect]
     Active Substance: REGORAFENIB
     Indication: GASTROINTESTINAL STROMAL TUMOUR
     Dosage: DAILY DOSE 160 MG (FOR 21 DAYS ON AND 7 DAYS OFF)
     Dates: start: 201901, end: 201901
  2. STIVARGA [Suspect]
     Active Substance: REGORAFENIB
     Indication: GASTROINTESTINAL STROMAL TUMOUR
     Dosage: DAILY DOSE 80 MG (FOR 21 DAYS ON 7 DAYS OFF)
     Dates: start: 2019, end: 2019

REACTIONS (2)
  - Stevens-Johnson syndrome [Recovered/Resolved]
  - Rash generalised [None]

NARRATIVE: CASE EVENT DATE: 201901
